FAERS Safety Report 13811280 (Version 1)
Quarter: 2017Q3

REPORT INFORMATION
  Report Type: Spontaneous
  Country: US (occurrence: US)
  Receive Date: 20170728
  Receipt Date: 20170728
  Transmission Date: 20171127
  Serious: No
  Sender: FDA-Public Use
  Company Number: US-ROCHE-1005289

PATIENT
  Age: 5 Month
  Sex: Female
  Weight: 110 kg

DRUGS (3)
  1. PREMARIN CREAM [Concomitant]
     Route: 065
  2. BONIVA [Suspect]
     Active Substance: IBANDRONATE SODIUM
     Route: 040
     Dates: start: 20110815, end: 20111018
  3. BONIVA [Suspect]
     Active Substance: IBANDRONATE SODIUM
     Indication: OSTEOPENIA
     Route: 040
     Dates: start: 200912

REACTIONS (4)
  - Unevaluable event [Recovered/Resolved]
  - Urticaria [Recovering/Resolving]
  - Injection site erythema [Recovering/Resolving]
  - Injection site swelling [Recovering/Resolving]

NARRATIVE: CASE EVENT DATE: 20111015
